FAERS Safety Report 7157934-7 (Version None)
Quarter: 2010Q4

REPORT INFORMATION
  Report Type: 
  Country: None (occurrence: None)
  Receive Date: 20101214
  Receipt Date: 20101206
  Transmission Date: 20110411
  Serious: Yes (Congenital Anomaly)
  Sender: FDA-Public Use
  Company Number: US-MERCK-1010USA01858B1

PATIENT
  Sex: Male
  Weight: 3 kg

DRUGS (8)
  1. ISENTRESS [Suspect]
     Indication: HIV INFECTION
     Route: 064
  2. VIRACEPT [Suspect]
     Route: 064
     Dates: end: 20100715
  3. INTELENCE [Suspect]
     Route: 064
     Dates: end: 20100715
  4. TRUVADA [Suspect]
     Route: 064
  5. PREZISTA [Suspect]
     Route: 064
  6. NORVIR [Suspect]
     Route: 064
  7. VIRAMUNE [Suspect]
     Route: 064
     Dates: end: 20101001
  8. RETROVIR [Suspect]
     Route: 064
     Dates: end: 20101001

REACTIONS (3)
  - DRUG EXPOSURE DURING PREGNANCY [None]
  - HIP DYSPLASIA [None]
  - JOINT CREPITATION [None]
